FAERS Safety Report 7762821-7 (Version None)
Quarter: 2011Q3

REPORT INFORMATION
  Report Type: 
  Country: None (occurrence: None)
  Receive Date: 20110920
  Receipt Date: 20110707
  Transmission Date: 20111222
  Serious: Yes (Hospitalization)
  Sender: FDA-Public Use
  Company Number: US-MERCK-1103USA01937

PATIENT
  Age: 65 Year
  Sex: Female

DRUGS (8)
  1. LISINOPRIL [Concomitant]
     Route: 048
     Dates: start: 20110408
  2. ACTOS [Concomitant]
     Route: 048
     Dates: start: 20110216, end: 20110314
  3. HYDROCHLOROTHIAZIDE [Concomitant]
     Route: 048
     Dates: start: 20100806
  4. ACTOS [Concomitant]
     Route: 048
     Dates: start: 20100722, end: 20110215
  5. AMITRIPTYLINE HYDROCHLORIDE [Concomitant]
     Route: 048
     Dates: start: 20100806, end: 20110216
  6. JANUMET [Suspect]
     Route: 048
     Dates: start: 20100722, end: 20101007
  7. LISINOPRIL [Concomitant]
     Route: 048
     Dates: start: 20110216, end: 20110407
  8. JANUMET [Suspect]
     Indication: TYPE 2 DIABETES MELLITUS
     Route: 048
     Dates: start: 20101008, end: 20110301

REACTIONS (2)
  - PANCREATITIS [None]
  - HYPERTENSION [None]
